FAERS Safety Report 6927188-2 (Version None)
Quarter: 2010Q3

REPORT INFORMATION
  Report Type: 
  Country: None (occurrence: None)
  Receive Date: 20100816
  Receipt Date: 20100811
  Transmission Date: 20110219
  Serious: No
  Sender: FDA-Public Use
  Company Number: US-ABBOTT-10P-163-0662736-00

PATIENT
  Sex: Female
  Weight: 79.904 kg

DRUGS (14)
  1. SIMCOR [Suspect]
     Indication: BLOOD TRIGLYCERIDES INCREASED
     Dates: start: 20100501
  2. JANUMET [Concomitant]
     Indication: DIABETES MELLITUS
  3. QUINAPRIL [Concomitant]
     Indication: HYPERTENSION
  4. AMILORIDE HYDROCHLORIDE [Concomitant]
     Indication: HYPERTENSION
  5. ATENOLOL [Concomitant]
     Indication: HYPERTENSION
  6. PRILOSEC [Concomitant]
     Indication: GASTROOESOPHAGEAL REFLUX DISEASE
  7. AVANDIA [Concomitant]
     Indication: DIABETES MELLITUS
  8. PRANDIN [Concomitant]
     Indication: DIABETES MELLITUS
  9. ASPIRIN [Concomitant]
     Indication: PRODUCT USED FOR UNKNOWN INDICATION
  10. VITAMIN D [Concomitant]
     Indication: SUPPLEMENTATION THERAPY
  11. FOLBIC [Concomitant]
     Indication: SUPPLEMENTATION THERAPY
  12. LOVAZA [Concomitant]
     Indication: SUPPLEMENTATION THERAPY
  13. FERROUS SULFATE [Concomitant]
     Indication: ANAEMIA
  14. MULTI-VITAMIN [Concomitant]
     Indication: SUPPLEMENTATION THERAPY

REACTIONS (4)
  - FEELING HOT [None]
  - PALPITATIONS [None]
  - PARAESTHESIA [None]
  - PRURITUS [None]
